FAERS Safety Report 11093887 (Version 1)
Quarter: 2015Q2

REPORT INFORMATION
  Report Type: Spontaneous
  Country: NL (occurrence: NL)
  Receive Date: 20150506
  Receipt Date: 20150506
  Transmission Date: 20150821
  Serious: Yes (Hospitalization)
  Sender: FDA-Public Use
  Company Number: NL-BAYER-2015-180067

PATIENT
  Age: 49 Year
  Sex: Male
  Weight: 78 kg

DRUGS (1)
  1. GADOVIST 1,0 MMOL/ML [Suspect]
     Active Substance: GADOBUTROL
     Indication: NUCLEAR MAGNETIC RESONANCE IMAGING
     Dosage: 7.5 ML, UNK
     Route: 042
     Dates: start: 20150414

REACTIONS (3)
  - Headache [Recovered/Resolved]
  - Generalised erythema [Recovered/Resolved]
  - Vascular pain [Recovered/Resolved]

NARRATIVE: CASE EVENT DATE: 20150414
